FAERS Safety Report 9660110 (Version 1)
Quarter: 2013Q4

REPORT INFORMATION
  Report Type: Spontaneous
  Country: CN (occurrence: CN)
  Receive Date: 20131031
  Receipt Date: 20131031
  Transmission Date: 20140711
  Serious: Yes (Death)
  Sender: FDA-Public Use
  Company Number: CN-JNJFOC-20131018426

PATIENT
  Sex: 0

DRUGS (3)
  1. ITRACONAZOLE [Suspect]
     Indication: FUNGAL INFECTION
     Route: 048
  2. FLUCONAZOLE [Suspect]
     Indication: FUNGAL INFECTION
     Route: 065
  3. AMPHOTERICIN B [Suspect]
     Indication: FUNGAL INFECTION
     Route: 065

REACTIONS (1)
  - Death [Fatal]
